FAERS Safety Report 18524998 (Version 2)
Quarter: 2020Q4

REPORT INFORMATION
  Report Type: Spontaneous
  Country: JP (occurrence: JP)
  Receive Date: 20201120
  Receipt Date: 20201209
  Transmission Date: 20210114
  Serious: Yes (Other)
  Sender: FDA-Public Use
  Company Number: JP-AMGEN-JPNSP2020184772

PATIENT
  Age: 51 Year
  Sex: Female

DRUGS (28)
  1. EPIRUBICIN HYDROCHLORIDE. [Concomitant]
     Active Substance: EPIRUBICIN HYDROCHLORIDE
     Indication: TRIPLE NEGATIVE BREAST CANCER
     Dosage: 90 MG/M2
     Route: 041
     Dates: start: 20200609, end: 20200609
  2. DECADRON [Suspect]
     Active Substance: DEXAMETHASONE
     Dosage: 8 MG
     Route: 048
     Dates: start: 20200625, end: 20200626
  3. DECADRON [Suspect]
     Active Substance: DEXAMETHASONE
     Dosage: 8 MG
     Route: 048
     Dates: start: 20201015
  4. EPIRUBICIN HYDROCHLORIDE. [Concomitant]
     Active Substance: EPIRUBICIN HYDROCHLORIDE
     Dosage: 90 MG/M2
     Route: 041
     Dates: start: 20200721, end: 20200721
  5. CYCLOPHOSPHAMIDE. [Concomitant]
     Active Substance: CYCLOPHOSPHAMIDE
     Dosage: 600 MG/M2
     Route: 041
     Dates: start: 20200707, end: 20200707
  6. PREDONINE [Concomitant]
     Active Substance: PREDNISOLONE
     Dosage: 10 MG
     Route: 048
     Dates: start: 20200916, end: 20200929
  7. DECADRON [Suspect]
     Active Substance: DEXAMETHASONE
     Dosage: 8 MG
     Route: 048
     Dates: start: 20200722, end: 20200723
  8. OLANZAPINE OD [Concomitant]
     Active Substance: OLANZAPINE
     Indication: VOMITING
     Dosage: 2.5 MG
     Route: 048
     Dates: start: 20200625, end: 20200629
  9. PREDONINE [Concomitant]
     Active Substance: PREDNISOLONE
     Dosage: 20 MG
     Route: 048
     Dates: start: 202009, end: 202009
  10. CYCLOPHOSPHAMIDE. [Concomitant]
     Active Substance: CYCLOPHOSPHAMIDE
     Dosage: 600 MG/M2
     Route: 041
     Dates: start: 20200721, end: 20200721
  11. PACLITAXEL. [Concomitant]
     Active Substance: PACLITAXEL
     Dosage: 175 MG/M2
     Route: 041
     Dates: start: 20200916, end: 20200916
  12. PACLITAXEL. [Concomitant]
     Active Substance: PACLITAXEL
     Dosage: 175 MG/M2
     Route: 041
     Dates: start: 20201014, end: 20201014
  13. OLANZAPINE OD [Concomitant]
     Active Substance: OLANZAPINE
     Dosage: 2.5 MG
     Route: 048
     Dates: start: 20200708, end: 20200712
  14. DECADRON [Suspect]
     Active Substance: DEXAMETHASONE
     Dosage: 8 MG
     Route: 048
     Dates: start: 20201001, end: 20201002
  15. OLANZAPINE OD [Concomitant]
     Active Substance: OLANZAPINE
     Dosage: 2.5 MG
     Route: 048
     Dates: start: 20200722, end: 20200726
  16. EMEND [Concomitant]
     Active Substance: APREPITANT
     Indication: PRODUCT USED FOR UNKNOWN INDICATION
     Dosage: UNK
     Route: 048
  17. DECADRON [Suspect]
     Active Substance: DEXAMETHASONE
     Dosage: 8 MG
     Route: 048
     Dates: start: 20200708, end: 20200709
  18. CYCLOPHOSPHAMIDE. [Concomitant]
     Active Substance: CYCLOPHOSPHAMIDE
     Dosage: 600 MG/M2
     Route: 041
     Dates: start: 20200624, end: 20200624
  19. OLANZAPINE OD [Concomitant]
     Active Substance: OLANZAPINE
     Indication: VOMITING
     Dosage: 5 MG
     Route: 048
     Dates: start: 20200610, end: 20200614
  20. PREDONINE [Concomitant]
     Active Substance: PREDNISOLONE
     Indication: VOMITING
     Dosage: 30 MG
     Route: 048
     Dates: start: 20200905, end: 20200907
  21. G-LASTA [Suspect]
     Active Substance: PEGFILGRASTIM
     Indication: COLONY STIMULATING FACTOR THERAPY
     Dosage: 3.6 MILLIGRAM
     Route: 058
     Dates: start: 20200610
  22. DECADRON [Suspect]
     Active Substance: DEXAMETHASONE
     Indication: VOMITING
     Dosage: 8 MG
     Route: 048
     Dates: start: 20200610, end: 20200611
  23. DECADRON [Suspect]
     Active Substance: DEXAMETHASONE
     Dosage: 8 MG
     Route: 048
     Dates: start: 20200826, end: 20200827
  24. EPIRUBICIN HYDROCHLORIDE. [Concomitant]
     Active Substance: EPIRUBICIN HYDROCHLORIDE
     Dosage: 90 MG/M2
     Route: 041
     Dates: start: 20200707, end: 20200707
  25. CYCLOPHOSPHAMIDE. [Concomitant]
     Active Substance: CYCLOPHOSPHAMIDE
     Indication: TRIPLE NEGATIVE BREAST CANCER
     Dosage: 600 MG/M2
     Route: 041
     Dates: start: 20200609, end: 20200609
  26. PACLITAXEL. [Concomitant]
     Active Substance: PACLITAXEL
     Indication: TRIPLE NEGATIVE BREAST CANCER
     Dosage: 175 MG/M2
     Route: 041
     Dates: start: 20200825, end: 20200825
  27. PACLITAXEL. [Concomitant]
     Active Substance: PACLITAXEL
     Dosage: 175 MG/M2
     Route: 041
     Dates: start: 20200930, end: 20200930
  28. EPIRUBICIN HYDROCHLORIDE. [Concomitant]
     Active Substance: EPIRUBICIN HYDROCHLORIDE
     Dosage: 90 MG/M2
     Route: 041
     Dates: start: 20200624, end: 20200624

REACTIONS (1)
  - Pneumocystis jirovecii pneumonia [Recovering/Resolving]

NARRATIVE: CASE EVENT DATE: 20200902
